FAERS Safety Report 18180783 (Version 8)
Quarter: 2021Q2

REPORT INFORMATION
  Report Type: Report from Study
  Country: US (occurrence: US)
  Receive Date: 20200821
  Receipt Date: 20210611
  Transmission Date: 20210717
  Serious: No
  Sender: FDA-Public Use
  Company Number: NVSC2020US231455

PATIENT
  Sex: Male

DRUGS (6)
  1. MAYZENT [Suspect]
     Active Substance: SIPONIMOD
     Dosage: 2 MG QD
     Route: 048
     Dates: start: 20201014
  2. MAYZENT [Suspect]
     Active Substance: SIPONIMOD
     Dosage: 2 MG, EVERY OTHER DAY
     Route: 048
  3. MAYZENT [Suspect]
     Active Substance: SIPONIMOD
     Dosage: 2 MG
     Route: 048
  4. MAYZENT [Suspect]
     Active Substance: SIPONIMOD
     Dosage: 2 MG, QD
     Route: 048
  5. MAYZENT [Suspect]
     Active Substance: SIPONIMOD
     Indication: MULTIPLE SCLEROSIS
     Dosage: 2 MG, QD
     Route: 048
  6. MAYZENT [Suspect]
     Active Substance: SIPONIMOD
     Dosage: 2 MG, QOD
     Route: 048

REACTIONS (4)
  - White blood cell count decreased [Unknown]
  - Inappropriate schedule of product administration [Unknown]
  - Lymphocyte count decreased [Unknown]
  - Product dose omission issue [Unknown]
